FAERS Safety Report 19819244 (Version 3)
Quarter: 2022Q1

REPORT INFORMATION
  Report Type: Spontaneous
  Country: US (occurrence: US)
  Receive Date: 20210913
  Receipt Date: 20220311
  Transmission Date: 20220423
  Serious: Yes (Other)
  Sender: FDA-Public Use
  Company Number: US-CIPLA LTD.-2021US06081

PATIENT

DRUGS (1)
  1. ATORVASTATIN [Suspect]
     Active Substance: ATORVASTATIN
     Indication: Intervertebral disc degeneration
     Dosage: UNK, 40 MG FOR THE PAST FOUR YEARS
     Route: 065

REACTIONS (3)
  - Fall [Recovered/Resolved]
  - Polymyositis [Recovering/Resolving]
  - Myopathy [Recovering/Resolving]
